FAERS Safety Report 4815512-6 (Version None)
Quarter: 2005Q4

REPORT INFORMATION
  Report Type: 
  Country: None (occurrence: None)
  Receive Date: 20051028
  Receipt Date: 20051028
  Transmission Date: 20060501
  Serious: Yes (Hospitalization)
  Sender: FDA-Public Use
  Company Number: None

PATIENT
  Age: 79 Year
  Sex: Male
  Weight: 93.4 kg

DRUGS (24)
  1. MYCOPHENOLATE MOFETIL [Suspect]
  2. ALBUTEROL SULFATE AND IPRATROPIUM BROMIDE [Concomitant]
  3. CEFUROXINE AXETIL [Concomitant]
  4. HUMULIN N [Concomitant]
  5. LISINOPRIL [Concomitant]
  6. OMEPRAZOLE [Concomitant]
  7. PREDNISONE [Concomitant]
  8. WARFARIN [Concomitant]
  9. OXYCODONE 5 MG/ACETAMINOPHEN [Concomitant]
  10. FENTANYL [Concomitant]
  11. ACC-CHEK COMFORT CV (GLUCOSE) TEST STRIP [Concomitant]
  12. ALCOHOL PREOP PAD [Concomitant]
  13. INSULIN NPH HUMABN [Concomitant]
  14. MEPERIDINE HYDROCHLORIDE [Concomitant]
  15. FENTANYL CITRATE PATCH [Concomitant]
  16. METOCLOPRAMIDE [Concomitant]
  17. IPRATROPIUM SOLU INH [Concomitant]
  18. BACT NS [Concomitant]
  19. ALBUTEROL SOLN INH [Concomitant]
  20. ROEZIT C ALOE VERA CR [Concomitant]
  21. ARTIFICIAL TEARS SOLN, OPH [Concomitant]
  22. METHYLPREDNISOLONE (SOLUMEDROL) [Concomitant]
  23. HUMULIN R [Concomitant]
  24. KETOROLAC TROMETHAMINE [Concomitant]

REACTIONS (2)
  - NORMOCHROMIC NORMOCYTIC ANAEMIA [None]
  - RENAL FAILURE [None]
